FAERS Safety Report 23771721 (Version 1)
Quarter: 2024Q2

REPORT INFORMATION
  Report Type: Spontaneous
  Country: US (occurrence: US)
  Receive Date: 20240423
  Receipt Date: 20240423
  Transmission Date: 20240716
  Serious: No
  Sender: FDA-Public Use
  Company Number: SCLX2400022

PATIENT
  Age: 60 Year
  Sex: Female

DRUGS (9)
  1. ZTLIDO [Suspect]
     Active Substance: LIDOCAINE
     Indication: Pain
     Dosage: 1 DOSAGE FORM, PRN
     Route: 061
     Dates: start: 202312
  2. ZTLIDO [Suspect]
     Active Substance: LIDOCAINE
     Indication: Neuralgia
     Dosage: 1 DOSAGE FORM, PRN
     Route: 061
     Dates: start: 202312
  3. ZTLIDO [Suspect]
     Active Substance: LIDOCAINE
     Indication: Arthritis
  4. TYLENOL [Concomitant]
     Active Substance: ACETAMINOPHEN
     Indication: Pain
     Dosage: UNK
  5. TYLENOL [Concomitant]
     Active Substance: ACETAMINOPHEN
     Indication: Neuralgia
  6. TYLENOL [Concomitant]
     Active Substance: ACETAMINOPHEN
     Indication: Arthritis
  7. LYRICA [Concomitant]
     Active Substance: PREGABALIN
     Indication: Neuralgia
     Dosage: UNK
  8. LYRICA [Concomitant]
     Active Substance: PREGABALIN
     Indication: Pain
  9. LYRICA [Concomitant]
     Active Substance: PREGABALIN
     Indication: Arthritis

REACTIONS (4)
  - Pain [Not Recovered/Not Resolved]
  - Off label use [Not Recovered/Not Resolved]
  - Product quality issue [Not Recovered/Not Resolved]
  - Product dose omission issue [Not Recovered/Not Resolved]

NARRATIVE: CASE EVENT DATE: 20240205
